FAERS Safety Report 15806421 (Version 1)
Quarter: 2019Q1

REPORT INFORMATION
  Report Type: Other
  Country: NL (occurrence: NL)
  Receive Date: 20190110
  Receipt Date: 20190110
  Transmission Date: 20190417
  Serious: Yes (Other)
  Sender: FDA-Public Use
  Company Number: NL-APOTEX-2019AP005156

PATIENT
  Age: 41 Year
  Sex: Female

DRUGS (1)
  1. ALLOPURINOL. [Suspect]
     Active Substance: ALLOPURINOL
     Indication: HYPERURICAEMIA
     Dosage: 100 MG, QD
     Route: 065

REACTIONS (14)
  - Hyponatraemia [Recovered/Resolved]
  - Eosinophilia [Recovered/Resolved]
  - Renal impairment [Recovered/Resolved]
  - Conjunctivitis [Recovered/Resolved]
  - Face oedema [Recovered/Resolved]
  - Staphylococcal scalded skin syndrome [Recovered/Resolved]
  - Hyperkalaemia [Recovered/Resolved]
  - Blister [Recovered/Resolved]
  - Lymphocytic infiltration [Recovered/Resolved]
  - Staphylococcal infection [Recovered/Resolved]
  - Rash papular [Recovered/Resolved]
  - Rash pruritic [Recovered/Resolved]
  - Drug reaction with eosinophilia and systemic symptoms [Recovered/Resolved]
  - Skin exfoliation [Recovered/Resolved]
